FAERS Safety Report 6959753-0 (Version None)
Quarter: 2010Q3

REPORT INFORMATION
  Report Type: 
  Country: None (occurrence: None)
  Receive Date: 20100901
  Receipt Date: 20100823
  Transmission Date: 20110219
  Serious: No
  Sender: FDA-Public Use
  Company Number: US-BIOGENIDEC-2010BI029298

PATIENT
  Age: 39 Year
  Sex: Female

DRUGS (1)
  1. TYSABRI [Suspect]
     Indication: MULTIPLE SCLEROSIS
     Route: 042
     Dates: start: 20100622

REACTIONS (7)
  - ARTHRALGIA [None]
  - ASTHENIA [None]
  - DYSPNOEA [None]
  - INFLAMMATION [None]
  - PAIN [None]
  - PRURITUS [None]
  - RASH [None]
